FAERS Safety Report 7572836-X (Version None)
Quarter: 2011Q2

REPORT INFORMATION
  Report Type: 
  Country: None (occurrence: None)
  Receive Date: 20110525
  Receipt Date: 20110301
  Transmission Date: 20111010
  Serious: Yes (Hospitalization)
  Sender: FDA-Public Use
  Company Number: 324231

PATIENT
  Sex: Female

DRUGS (3)
  1. LANTUS [Concomitant]
  2. NOVOLOG [Concomitant]
  3. VICTOZA [Suspect]
     Indication: TYPE 2 DIABETES MELLITUS
     Dosage: 1.8 MG, QD, SUBCUTANEOUS
     Route: 058
     Dates: end: 20110224

REACTIONS (1)
  - PANCREATITIS [None]
